FAERS Safety Report 14785014 (Version 1)
Quarter: 2018Q2

REPORT INFORMATION
  Report Type: Spontaneous
  Country: US (occurrence: US)
  Receive Date: 20180420
  Receipt Date: 20180420
  Transmission Date: 20180711
  Serious: Yes (Other)
  Sender: FDA-Public Use
  Company Number: US-SA-2018SA112006

PATIENT
  Age: 59 Year
  Sex: Female

DRUGS (2)
  1. LANTUS SOLOSTAR [Suspect]
     Active Substance: INSULIN GLARGINE
     Route: 051
     Dates: start: 201602
  2. SOLOSTAR [Suspect]
     Active Substance: DEVICE
     Dates: start: 201602

REACTIONS (2)
  - Cardiac operation [Unknown]
  - Fatigue [Unknown]
